FAERS Safety Report 6424548-3 (Version None)
Quarter: 2009Q4

REPORT INFORMATION
  Report Type: 
  Country: None (occurrence: None)
  Receive Date: 20091030
  Receipt Date: 20091030
  Transmission Date: 20100525
  Serious: Yes (Hospitalization)
  Sender: FDA-Public Use
  Company Number: None

PATIENT
  Age: 84 Year

DRUGS (2)
  1. LISINOPRIL [Suspect]
     Indication: HYPERTENSION
     Dosage: 40 MG EVERY DAY PO
     Route: 048
     Dates: start: 20040924, end: 20081021
  2. LISINOPRIL [Suspect]
     Indication: RENAL FAILURE CHRONIC
     Dosage: 40 MG EVERY DAY PO
     Route: 048
     Dates: start: 20040924, end: 20081021

REACTIONS (3)
  - DIARRHOEA [None]
  - HYPERKALAEMIA [None]
  - RENAL FAILURE ACUTE [None]
